FAERS Safety Report 4447416-5 (Version None)
Quarter: 2004Q3

REPORT INFORMATION
  Report Type: 
  Country: None (occurrence: None)
  Receive Date: 20040823
  Receipt Date: 20040511
  Transmission Date: 20050211
  Serious: No
  Sender: FDA-Public Use
  Company Number: PHEH2004US03416

PATIENT
  Age: 55 Year
  Sex: Female

DRUGS (8)
  1. ZELNORM [Suspect]
     Indication: IRRITABLE BOWEL SYNDROME
     Dosage: 6 MG, BID,
     Dates: start: 20040201, end: 20030323
  2. ZELNORM [Suspect]
     Indication: IRRITABLE BOWEL SYNDROME
     Dosage: 6 MG, BID,
     Dates: start: 20040510
  3. REQUIP [Suspect]
     Indication: RESTLESS LEGS SYNDROME
     Dates: start: 20040201
  4. REQUIP [Suspect]
     Indication: RESTLESS LEGS SYNDROME
     Dates: start: 20040510
  5. KLONOPIN [Concomitant]
  6. ESTRADIOL [Concomitant]
  7. AMBIEN [Concomitant]
  8. PROPYLTHIOURACIL [Concomitant]

REACTIONS (3)
  - BRONCHITIS [None]
  - CHEST DISCOMFORT [None]
  - COUGH [None]
